FAERS Safety Report 15507305 (Version 2)
Quarter: 2018Q4

REPORT INFORMATION
  Report Type: Spontaneous
  Country: JP (occurrence: JP)
  Receive Date: 20181016
  Receipt Date: 20181029
  Transmission Date: 20190205
  Serious: Yes (Hospitalization)
  Sender: FDA-Public Use
  Company Number: JP-JT-EVA201802765KERYXP-001

PATIENT
  Age: 80 Year
  Sex: Female

DRUGS (5)
  1. RIONA [Suspect]
     Active Substance: FERRIC CITRATE ANHYDROUS
     Indication: HYPERPHOSPHATAEMIA
     Dosage: 250 MG, TID
     Route: 048
     Dates: start: 20170308
  2. NESP [Suspect]
     Active Substance: DARBEPOETIN ALFA
     Dosage: 5 MICRO-G, QWK
     Route: 042
     Dates: start: 20180723
  3. NESP [Suspect]
     Active Substance: DARBEPOETIN ALFA
     Dosage: 10 MICRO-G, QWK
     Route: 042
     Dates: start: 20180611, end: 20180722
  4. FERROMIA [Concomitant]
     Active Substance: SODIUM FERROUS CITRATE
     Indication: IRON DEFICIENCY ANAEMIA
     Dosage: 50 MG, BID
     Route: 048
     Dates: end: 20180307
  5. NESP [Suspect]
     Active Substance: DARBEPOETIN ALFA
     Indication: NEPHROGENIC ANAEMIA
     Dosage: 20 MICRO-G, QWK
     Route: 042
     Dates: start: 20171225, end: 20180610

REACTIONS (2)
  - Shunt occlusion [Recovered/Resolved]
  - Haemoglobin increased [Unknown]

NARRATIVE: CASE EVENT DATE: 20180625
